FAERS Safety Report 14634254 (Version 10)
Quarter: 2020Q2

REPORT INFORMATION
  Report Type: Report from Study
  Country: GB (occurrence: GB)
  Receive Date: 20180314
  Receipt Date: 20200430
  Transmission Date: 20200713
  Serious: Yes (Hospitalization)
  Sender: FDA-Public Use
  Company Number: GB-ROCHE-2087507

PATIENT
  Age: 56 Year
  Sex: Male
  Weight: 114.1 kg

DRUGS (44)
  1. INFLIXIMAB [Suspect]
     Active Substance: INFLIXIMAB
     Indication: PRODUCT USED FOR UNKNOWN INDICATION
     Route: 065
  2. PREDNISOLONE. [Concomitant]
     Active Substance: PREDNISOLONE
     Indication: DIARRHOEA
     Route: 048
     Dates: start: 20180123, end: 20180130
  3. METHYLPREDNISOLONE SODIUM SUCCINATE. [Concomitant]
     Active Substance: METHYLPREDNISOLONE SODIUM SUCCINATE
     Indication: IMMUNE-MEDIATED ENTEROCOLITIS
     Route: 042
     Dates: start: 20180206
  4. EPADERM [Concomitant]
     Active Substance: MINERAL OIL\PETROLATUM\WAX, EMULSIFYING
     Indication: DRY SKIN
  5. INFLIXIMAB [Concomitant]
     Active Substance: INFLIXIMAB
     Route: 042
     Dates: start: 20180227, end: 20180227
  6. INFLIXIMAB [Concomitant]
     Active Substance: INFLIXIMAB
     Route: 042
     Dates: start: 20180405, end: 20180405
  7. PARACETAMOL [Concomitant]
     Active Substance: ACETAMINOPHEN
     Route: 048
     Dates: start: 20180209, end: 20180209
  8. PREDNISOLONE. [Concomitant]
     Active Substance: PREDNISOLONE
     Indication: TRANSAMINASES INCREASED
     Route: 048
     Dates: start: 20180211, end: 20180215
  9. EPADERM [Concomitant]
     Active Substance: MINERAL OIL\PETROLATUM\WAX, EMULSIFYING
     Indication: RASH ERYTHEMATOUS
     Route: 061
     Dates: start: 20180209
  10. INSULATARD [INSULIN HUMAN INJECTION, ISOPHANE] [Concomitant]
     Active Substance: INSULIN HUMAN
     Indication: HYPERGLYCAEMIA
     Dosage: 24 UNITS
     Route: 058
     Dates: start: 20180406
  11. PARACETAMOL [Concomitant]
     Active Substance: ACETAMINOPHEN
     Indication: ABDOMINAL DISCOMFORT
     Route: 048
     Dates: start: 20180131, end: 20180131
  12. PREDNISOLONE. [Concomitant]
     Active Substance: PREDNISOLONE
     Route: 048
     Dates: start: 20180216, end: 20180220
  13. PREDNISOLONE. [Concomitant]
     Active Substance: PREDNISOLONE
     Route: 048
     Dates: start: 20180226, end: 20180302
  14. OMEPRAZOLE. [Concomitant]
     Active Substance: OMEPRAZOLE
     Route: 048
     Dates: start: 20180123, end: 20180201
  15. COTRIMOXAZOLE [Concomitant]
     Active Substance: SULFAMETHOXAZOLE\TRIMETHOPRIM
     Route: 048
     Dates: start: 20180209
  16. PHOSPHATE [PHOSPHORIC ACID SODIUM] [Concomitant]
     Active Substance: SODIUM PHOSPHATE
  17. PREDNISOLONE. [Concomitant]
     Active Substance: PREDNISOLONE
     Indication: IMMUNE-MEDIATED ENTEROCOLITIS
     Route: 054
     Dates: start: 20180202
  18. PREDNISOLONE. [Concomitant]
     Active Substance: PREDNISOLONE
     Route: 048
     Dates: start: 20180303, end: 20180307
  19. METHYLPREDNISOLONE. [Concomitant]
     Active Substance: METHYLPREDNISOLONE
     Route: 042
     Dates: start: 20180206, end: 20180210
  20. LOPERAMIDE [Concomitant]
     Active Substance: LOPERAMIDE
     Indication: DIARRHOEA
     Route: 048
     Dates: start: 201712
  21. INSULATARD [INSULIN HUMAN INJECTION, ISOPHANE] [Concomitant]
     Active Substance: INSULIN HUMAN
     Dosage: 12 UNITS
     Route: 058
     Dates: start: 20180405
  22. MYCOPHENOLATE MOFETIL. [Concomitant]
     Active Substance: MYCOPHENOLATE MOFETIL
     Route: 048
  23. PARACETAMOL [Concomitant]
     Active Substance: ACETAMINOPHEN
     Route: 048
     Dates: start: 20180224, end: 20180224
  24. IBUPROFEN. [Concomitant]
     Active Substance: IBUPROFEN
     Indication: HEADACHE
     Route: 048
     Dates: start: 20171215
  25. PREDNISOLONE. [Concomitant]
     Active Substance: PREDNISOLONE
     Route: 048
     Dates: start: 20180221, end: 20180225
  26. PREDNISOLONE. [Concomitant]
     Active Substance: PREDNISOLONE
     Route: 048
     Dates: start: 20180308, end: 20180311
  27. PREDNISOLONE. [Concomitant]
     Active Substance: PREDNISOLONE
     Route: 048
     Dates: start: 20180320, end: 20180329
  28. METHYLPREDNISOLONE. [Concomitant]
     Active Substance: METHYLPREDNISOLONE
     Indication: IMMUNE-MEDIATED ENTEROCOLITIS
     Route: 042
     Dates: start: 20180130, end: 20180201
  29. BISOPROLOL [Concomitant]
     Active Substance: BISOPROLOL
  30. ISOPHANE INSULIN [Concomitant]
     Active Substance: INSULIN NOS
  31. ATEZOLIZUMAB. [Suspect]
     Active Substance: ATEZOLIZUMAB
     Indication: NEOPLASM
     Dosage: DATE OF MOST RECENT DOSE: 03/JAN/2018, AT 11:35
     Route: 042
     Dates: start: 20171012
  32. COTRIMOXAZOLE [Concomitant]
     Active Substance: SULFAMETHOXAZOLE\TRIMETHOPRIM
     Route: 042
     Dates: start: 20180207, end: 20180207
  33. APIXABAN [Concomitant]
     Active Substance: APIXABAN
     Route: 048
     Dates: start: 20180405
  34. NOVORAPID [Concomitant]
     Active Substance: INSULIN ASPART
     Dosage: 6 UNIT
     Route: 058
     Dates: start: 20180406, end: 20180406
  35. DERMOL 500 [Concomitant]
  36. PARACETAMOL [Concomitant]
     Active Substance: ACETAMINOPHEN
     Indication: HEADACHE
     Route: 048
     Dates: start: 20171103, end: 20171103
  37. PREDNISOLONE. [Concomitant]
     Active Substance: PREDNISOLONE
     Route: 065
     Dates: start: 20180406
  38. OMEPRAZOLE. [Concomitant]
     Active Substance: OMEPRAZOLE
     Route: 048
     Dates: start: 20180131
  39. EPADERM [Concomitant]
     Active Substance: MINERAL OIL\PETROLATUM\WAX, EMULSIFYING
     Indication: AUTOIMMUNE DERMATITIS
     Route: 061
     Dates: start: 20180206, end: 20180208
  40. ZOPICLONE [Concomitant]
     Active Substance: ZOPICLONE
     Indication: INSOMNIA
     Route: 048
     Dates: start: 20180210, end: 20180210
  41. PREDNISOLONE. [Concomitant]
     Active Substance: PREDNISOLONE
     Route: 048
     Dates: start: 20180205, end: 20180206
  42. METHYLPREDNISOLONE. [Concomitant]
     Active Substance: METHYLPREDNISOLONE
     Route: 042
     Dates: start: 20180329, end: 20180405
  43. CHLORPHENIRAMINE [CHLORPHENAMINE] [Concomitant]
     Active Substance: CHLORPHENIRAMINE
     Indication: AUTOIMMUNE DERMATITIS
     Route: 048
     Dates: start: 201802
  44. INFLIXIMAB [Concomitant]
     Active Substance: INFLIXIMAB
     Indication: IMMUNE-MEDIATED ENTEROCOLITIS
     Route: 042
     Dates: start: 20180202, end: 20180202

REACTIONS (3)
  - Hepatitis [Recovered/Resolved]
  - Atrial flutter [Recovered/Resolved]
  - Immune-mediated enterocolitis [Recovered/Resolved]

NARRATIVE: CASE EVENT DATE: 20180306
